FAERS Safety Report 10585470 (Version 1)
Quarter: 2014Q4

REPORT INFORMATION
  Report Type: Spontaneous
  Country: US (occurrence: US)
  Receive Date: 20141114
  Receipt Date: 20141114
  Transmission Date: 20150529
  Serious: No
  Sender: FDA-Public Use
  Company Number: US-GLAXOSMITHKLINE-US2014GSK020549

PATIENT
  Sex: Female

DRUGS (14)
  1. L-CARNITINE [Concomitant]
     Active Substance: CARNITINE
  2. GARLIC. [Concomitant]
     Active Substance: GARLIC
  3. ALPHA LIPOIC ACID [Concomitant]
     Active Substance: .ALPHA.-LIPOIC ACID
  4. IRINOTECAN HYDROCHLORIDE. [Concomitant]
     Active Substance: IRINOTECAN HYDROCHLORIDE
  5. MULTIVITAMINS [Concomitant]
     Active Substance: VITAMINS
  6. IMODIUM [Concomitant]
     Active Substance: LOPERAMIDE HYDROCHLORIDE
  7. VITAMIN D [Concomitant]
     Active Substance: CHOLECALCIFEROL
  8. PROMACTA [Suspect]
     Active Substance: ELTROMBOPAG OLAMINE
     Indication: COLON CANCER
     Dosage: 50 MG, QD
     Route: 048
     Dates: start: 20140808
  9. COENZYME Q10 [Concomitant]
     Active Substance: UBIDECARENONE
  10. FISH OIL [Concomitant]
     Active Substance: FISH OIL
  11. LYSINE [Concomitant]
     Active Substance: LYSINE
  12. VITAMIN B COMPLEX [Concomitant]
     Active Substance: CYANOCOBALAMIN\DEXPANTHENOL\NIACINAMIDE\PYRIDOXINE HYDROCHLORIDE\RIBOFLAVIN 5^-PHOSPHATE SODIUM\THIAMINE HYDROCHLORIDE\VITAMIN B COMPLEX
  13. PROBIOTICS [Concomitant]
     Active Substance: PROBIOTICS NOS
  14. UNKNOWN CANCER THERAPY DRUG [Suspect]
     Active Substance: UNSPECIFIED INGREDIENT
     Indication: NEOPLASM MALIGNANT
     Dosage: UNK

REACTIONS (2)
  - Adverse event [Unknown]
  - Hospice care [Unknown]
